FAERS Safety Report 5048858-X (Version None)
Quarter: 2006Q3

REPORT INFORMATION
  Report Type: 
  Country: None (occurrence: None)
  Receive Date: 20060712
  Receipt Date: 20040602
  Transmission Date: 20061208
  Serious: Yes (Hospitalization)
  Sender: FDA-Public Use
  Company Number: US-GLAXOSMITHKLINE-A0513046A

PATIENT
  Age: 52 Year
  Sex: Female

DRUGS (3)
  1. IMITREX [Suspect]
     Indication: MIGRAINE
     Dosage: 25MG AS REQUIRED
     Route: 048
     Dates: start: 20030801, end: 20030920
  2. IMITREX [Suspect]
     Dosage: 25MG AS REQUIRED
     Route: 042
     Dates: start: 20020522, end: 20020522
  3. NO CONCURRENT MEDICATION [Concomitant]

REACTIONS (4)
  - CEREBROVASCULAR ACCIDENT [None]
  - CHEST PAIN [None]
  - HYPOAESTHESIA [None]
  - LOSS OF CONSCIOUSNESS [None]
